FAERS Safety Report 8950868 (Version 1)
Quarter: 2012Q4

REPORT INFORMATION
  Report Type: Spontaneous
  Country: KR (occurrence: None)
  Receive Date: 20121128
  Receipt Date: 20121128
  Transmission Date: 20130627
  Serious: Yes (Other)
  Sender: FDA-Public Use
  Company Number: DSA_61019_2012

PATIENT
  Age: 60 Year
  Sex: Female

DRUGS (1)
  1. METRONIDAZOLE (METRONIDAZOLE) [Suspect]
     Indication: BRAIN ABSCESS
     Dosage: (DF)

REACTIONS (4)
  - Toxic encephalopathy [None]
  - Dysarthria [None]
  - Paraesthesia [None]
  - Hemiparesis [None]
